FAERS Safety Report 7011433-1 (Version None)
Quarter: 2010Q3

REPORT INFORMATION
  Report Type: 
  Country: None (occurrence: None)
  Receive Date: 20100923
  Receipt Date: 20090217
  Transmission Date: 20110219
  Serious: No
  Sender: FDA-Public Use
  Company Number: US-WYE-H07755409

PATIENT
  Sex: Female
  Weight: 76 kg

DRUGS (6)
  1. PREMARIN [Suspect]
     Indication: HORMONE REPLACEMENT THERAPY
     Dosage: TAKING PREMARIN ON AND OFF FOR OVER 25 YEARS, STARTED ON 0.625MG AND FIVES YEARS AGO REDUCED TO.3MG
     Route: 048
  2. ZETIA [Concomitant]
  3. HYDROCHLOROTHIAZIDE [Concomitant]
  4. ALLEGRA [Concomitant]
  5. LIPITOR [Concomitant]
  6. PATANOL [Concomitant]

REACTIONS (4)
  - ALOPECIA [None]
  - HOT FLUSH [None]
  - INAPPROPRIATE SCHEDULE OF DRUG ADMINISTRATION [None]
  - INSOMNIA [None]
